FAERS Safety Report 8395228-2 (Version None)
Quarter: 2012Q2

REPORT INFORMATION
  Report Type: 
  Country: None (occurrence: None)
  Receive Date: 20120530
  Receipt Date: 20120528
  Transmission Date: 20120825
  Serious: Yes (Death, Life-Threatening, Hospitalization)
  Sender: FDA-Public Use
  Company Number: GR-ABBOTT-12P-066-0919954-00

PATIENT
  Age: 67 Year
  Sex: Male

DRUGS (8)
  1. KALETRA [Suspect]
     Indication: HEPATITIS B
  2. KALETRA [Suspect]
     Indication: HIV INFECTION
  3. TENOFOVIR + EMTRICITABINE (TRUVANTA) [Concomitant]
     Indication: HIV INFECTION
  4. STEROIDS [Concomitant]
     Indication: RHEUMATOID ARTHRITIS
  5. METHOTREXATE [Concomitant]
     Indication: RHEUMATOID ARTHRITIS
  6. TENOFOVIR + EMTRICITABINE (TRUVANTA) [Concomitant]
     Indication: HEPATITIS B
  7. REMICADE [Concomitant]
     Indication: RHEUMATOID ARTHRITIS
  8. EMTRICITABINE [Concomitant]
     Indication: HIV INFECTION

REACTIONS (4)
  - RENAL FAILURE ACUTE [None]
  - ACUTE HEPATIC FAILURE [None]
  - HEPATITIS D [None]
  - SUPERINFECTION [None]
